FAERS Safety Report 10606899 (Version 1)
Quarter: 2014Q4

REPORT INFORMATION
  Report Type: Spontaneous
  Country: US (occurrence: US)
  Receive Date: 20141125
  Receipt Date: 20141125
  Transmission Date: 20150529
  Serious: Yes (Other)
  Sender: FDA-Public Use
  Company Number: US-AMGEN-USASP2014090551

PATIENT
  Age: 70 Year
  Sex: Female

DRUGS (2)
  1. CRESTOR [Concomitant]
     Active Substance: ROSUVASTATIN CALCIUM
     Dosage: QD, EVERY EVENING
  2. PROLIA [Suspect]
     Active Substance: DENOSUMAB
     Indication: PRODUCT USED FOR UNKNOWN INDICATION
     Dosage: UNK
     Route: 065

REACTIONS (5)
  - Normal pressure hydrocephalus [Recovered/Resolved]
  - Asthenia [Unknown]
  - Blood pressure abnormal [Recovered/Resolved]
  - Groin pain [Recovered/Resolved]
  - Blood cholesterol abnormal [Recovered/Resolved]

NARRATIVE: CASE EVENT DATE: 2010
